FAERS Safety Report 8000052-6 (Version None)
Quarter: 2011Q4

REPORT INFORMATION
  Report Type: 
  Country: None (occurrence: None)
  Receive Date: 20111222
  Receipt Date: 20111212
  Transmission Date: 20120403
  Serious: No
  Sender: FDA-Public Use
  Company Number: US-BIOGENIDEC-2011BI046946

PATIENT
  Age: 47 Year
  Sex: Female

DRUGS (2)
  1. NAPROXEN (ALEVE) [Concomitant]
     Indication: PREMEDICATION
  2. AVONEX [Suspect]
     Indication: MULTIPLE SCLEROSIS
     Route: 030
     Dates: start: 20080601

REACTIONS (8)
  - FEELING ABNORMAL [None]
  - PARAESTHESIA [None]
  - MULTIPLE SCLEROSIS RELAPSE [None]
  - FATIGUE [None]
  - INSOMNIA [None]
  - CHILLS [None]
  - HYPOAESTHESIA [None]
  - THINKING ABNORMAL [None]
